FAERS Safety Report 13202089 (Version 2)
Quarter: 2017Q2

REPORT INFORMATION
  Report Type: Spontaneous
  Country: JP (occurrence: JP)
  Receive Date: 20170208
  Receipt Date: 20170417
  Transmission Date: 20170830
  Serious: Yes (Death)
  Sender: FDA-Public Use
  Company Number: JP-SA-2017SA019758

PATIENT
  Age: 96 Year
  Sex: Female

DRUGS (13)
  1. MINERALS NOS/VITAMINS NOS/AMINO ACIDS NOS [Concomitant]
     Dosage: NOON
     Route: 048
     Dates: start: 20170112, end: 20170112
  2. HUMULIN R [Concomitant]
     Active Substance: INSULIN HUMAN
     Dosage: (0-6-6-2)
     Route: 058
     Dates: start: 20170112, end: 20170112
  3. SOLDEM 1 [Concomitant]
     Active Substance: DEXTROSE\SODIUM CHLORIDE\SODIUM LACTATE
     Route: 042
     Dates: start: 20170111, end: 20170112
  4. NESINA [Concomitant]
     Active Substance: ALOGLIPTIN BENZOATE
     Route: 048
     Dates: end: 20170110
  5. METFORMIN [Concomitant]
     Active Substance: METFORMIN HYDROCHLORIDE
     Route: 048
     Dates: end: 20170110
  6. SOLYUGEN F [Concomitant]
     Route: 042
     Dates: start: 20170113, end: 20170113
  7. HUMULIN R [Concomitant]
     Active Substance: INSULIN HUMAN
     Dosage: (2-0-0-0) DOSE:2 UNIT(S)
     Route: 058
     Dates: start: 20170113, end: 20170113
  8. VITAMIN B NOS [Concomitant]
     Active Substance: VITAMIN B
     Route: 042
     Dates: start: 20170112, end: 20170112
  9. TIAPRIDE [Concomitant]
     Active Substance: TIAPRIDE
     Dates: start: 20170112, end: 20170112
  10. SULFONYLUREA [Concomitant]
     Active Substance: UNSPECIFIED INGREDIENT
  11. LANTUS [Suspect]
     Active Substance: INSULIN GLARGINE
     Indication: DIABETES MELLITUS
     Dosage: DOSE:4 UNIT(S)
     Route: 058
     Dates: start: 20170112, end: 20170113
  12. TRAZENTA [Suspect]
     Active Substance: LINAGLIPTIN
     Indication: DIABETES MELLITUS
     Route: 048
     Dates: start: 20170112, end: 20170114
  13. GLIMEPIRIDE. [Concomitant]
     Active Substance: GLIMEPIRIDE
     Route: 048
     Dates: end: 20170110

REACTIONS (1)
  - Hypoglycaemia [Fatal]

NARRATIVE: CASE EVENT DATE: 20170114
